FAERS Safety Report 8117050-4 (Version None)
Quarter: 2012Q1

REPORT INFORMATION
  Report Type: 
  Country: None (occurrence: None)
  Receive Date: 20120206
  Receipt Date: 20120202
  Transmission Date: 20120608
  Serious: Yes (Other)
  Sender: FDA-Public Use
  Company Number: US-BAYER-2012-011154

PATIENT
  Sex: Male

DRUGS (9)
  1. ALEVE (CAPLET) [Suspect]
     Indication: ANALGESIC THERAPY
     Route: 048
  2. OMEPRAZOLE [Concomitant]
  3. POTASSIUM [Concomitant]
  4. METOPROLOL [Concomitant]
  5. AMILORIDE HYDROCHLORIDE [Concomitant]
  6. FUROSEMIDE [Concomitant]
  7. GLIPIZIDE [Concomitant]
  8. ASPIRIN [Suspect]
  9. LIPITOR [Concomitant]

REACTIONS (1)
  - RECTAL HAEMORRHAGE [None]
